FAERS Safety Report 23301776 (Version 1)
Quarter: 2023Q4

REPORT INFORMATION
  Report Type: Spontaneous
  Country: US (occurrence: US)
  Receive Date: 20231215
  Receipt Date: 20231215
  Transmission Date: 20240110
  Serious: No
  Sender: FDA-Public Use
  Company Number: US-SA-SAC20231213000850

PATIENT
  Sex: Female
  Weight: 61 kg

DRUGS (9)
  1. DUPIXENT [Suspect]
     Active Substance: DUPILUMAB
     Indication: Dermatitis atopic
     Dosage: 300 MG, QOW
     Route: 058
  2. OLLY WOMEN^S MULTI [Concomitant]
  3. HYDROCORTISONE [Concomitant]
     Active Substance: HYDROCORTISONE
  4. TACROLIMUS [Concomitant]
     Active Substance: TACROLIMUS
  5. ADAPALENE AND BENZOYL PEROXIDE [Concomitant]
     Active Substance: ADAPALENE\BENZOYL PEROXIDE
  6. DOXYCYCLINE HYCLATE [Concomitant]
     Active Substance: DOXYCYCLINE HYCLATE
  7. HERBALS [Concomitant]
     Active Substance: HERBALS
  8. VITAMIN B [Concomitant]
     Active Substance: VITAMIN B
  9. BIOTIN [Concomitant]
     Active Substance: BIOTIN

REACTIONS (1)
  - Acne [Unknown]
